FAERS Safety Report 26124259 (Version 2)
Quarter: 2025Q4

REPORT INFORMATION
  Report Type: Spontaneous
  Country: EU (occurrence: EU)
  Receive Date: 20251205
  Receipt Date: 20251214
  Transmission Date: 20260118
  Serious: Yes (Other)
  Sender: BRISTOL-MYERS SQUIBB COMPANY
  Company Number: EU-BRISTOL-MYERS SQUIBB COMPANY-2025-161768

PATIENT
  Sex: Female

DRUGS (4)
  1. ELIQUIS [Suspect]
     Active Substance: APIXABAN
     Indication: Thrombophlebitis
     Dosage: FREQ : TWICE A DAY
     Dates: start: 2023
  2. ELIQUIS [Suspect]
     Active Substance: APIXABAN
     Indication: Thrombosis
  3. CORTISONE [Suspect]
     Active Substance: CORTISONE
     Indication: Infection
     Dosage: HIGH-DOSE
  4. ARIXTRA [Concomitant]
     Active Substance: FONDAPARINUX SODIUM
     Indication: Thrombophlebitis

REACTIONS (25)
  - Anaemia [Unknown]
  - Hypertension [Unknown]
  - Drug intolerance [Unknown]
  - Dizziness [Unknown]
  - Oedema [Unknown]
  - Blood cholesterol increased [Unknown]
  - Iron deficiency [Unknown]
  - Pruritus [Unknown]
  - Condition aggravated [Unknown]
  - Abdominal pain [Unknown]
  - Peripheral swelling [Unknown]
  - Fatigue [Unknown]
  - Vitamin D deficiency [Unknown]
  - Asthenia [Unknown]
  - Cataract [Unknown]
  - Glaucoma [Unknown]
  - Petechiae [Unknown]
  - Basal cell carcinoma [Unknown]
  - Neoplasm malignant [Unknown]
  - Rheumatic disorder [Unknown]
  - Coronary artery occlusion [Unknown]
  - Cardiac disorder [Unknown]
  - Hypercoagulation [Unknown]
  - Pallor [Unknown]
  - Dark circles under eyes [Unknown]
